FAERS Safety Report 10295735 (Version 1)
Quarter: 2014Q3

REPORT INFORMATION
  Report Type: Spontaneous
  Country: US (occurrence: None)
  Receive Date: 20140709
  Receipt Date: 20140709
  Transmission Date: 20150326
  Serious: No
  Sender: FDA-Public Use
  Company Number: DL2014-0288

PATIENT
  Age: 25 Year
  Sex: Female

DRUGS (2)
  1. MISOPROSTOL. [Suspect]
     Active Substance: MISOPROSTOL
     Dosage: 800 MCG, VAGINAL
     Route: 067
     Dates: start: 20140303
  2. MIFEPRISTONE [Suspect]
     Active Substance: MIFEPRISTONE
     Indication: ABORTION INDUCED
     Route: 048
     Dates: start: 20140301

REACTIONS (1)
  - Abortion incomplete [None]

NARRATIVE: CASE EVENT DATE: 20140322
